FAERS Safety Report 15013167 (Version 3)
Quarter: 2018Q3

REPORT INFORMATION
  Report Type: Spontaneous
  Country: US (occurrence: US)
  Receive Date: 20180614
  Receipt Date: 20180831
  Transmission Date: 20181010
  Serious: Yes (Other)
  Sender: FDA-Public Use
  Company Number: US-PFIZER INC-2018241602

PATIENT
  Age: 16 Year
  Sex: Male

DRUGS (1)
  1. ADVIL [Suspect]
     Active Substance: IBUPROFEN
     Indication: PAIN
     Dosage: UNK UNK, AS NEEDED (BASED ON HIS PAIN LEVEL, HAS TAKEN UP 6 AT NIGHT AND 6 IN THE MORNING TO 9)
     Dates: end: 2015

REACTIONS (5)
  - Hepatic enzyme increased [Unknown]
  - Intentional product misuse [Unknown]
  - Arthropathy [Unknown]
  - Liver function test increased [Unknown]
  - Rotator cuff syndrome [Unknown]

NARRATIVE: CASE EVENT DATE: 1995
